FAERS Safety Report 6256744-2 (Version None)
Quarter: 2009Q3

REPORT INFORMATION
  Report Type: 
  Country: None (occurrence: None)
  Receive Date: 20090706
  Receipt Date: 20090625
  Transmission Date: 20100115
  Serious: Yes (Other)
  Sender: FDA-Public Use
  Company Number: DE-JNJFOC-20090601162

PATIENT
  Sex: Female
  Weight: 19 kg

DRUGS (1)
  1. RISPERDAL [Suspect]
     Indication: AUTISM
     Route: 048

REACTIONS (4)
  - CARDIAC MURMUR [None]
  - CARDIOMYOPATHY [None]
  - DRUG INEFFECTIVE [None]
  - ELECTROCARDIOGRAM REPOLARISATION ABNORMALITY [None]
